FAERS Safety Report 10784374 (Version 1)
Quarter: 2015Q1

REPORT INFORMATION
  Report Type: Spontaneous
  Country: US (occurrence: None)
  Receive Date: 20150209
  Receipt Date: 20150209
  Transmission Date: 20150721
  Serious: No
  Sender: FDA-Public Use
  Company Number: None

PATIENT
  Age: 11 Year
  Sex: Male
  Weight: 56.7 kg

DRUGS (1)
  1. BUPROPION SR [Suspect]
     Active Substance: BUPROPION
     Indication: ATTENTION DEFICIT/HYPERACTIVITY DISORDER
     Route: 048
     Dates: start: 20141031, end: 20150123

REACTIONS (5)
  - Product substitution issue [None]
  - Agitation [None]
  - Product quality issue [None]
  - Product formulation issue [None]
  - Anger [None]

NARRATIVE: CASE EVENT DATE: 20150126
